FAERS Safety Report 4504578-9 (Version None)
Quarter: 2004Q4

REPORT INFORMATION
  Report Type: 
  Country: None (occurrence: None)
  Receive Date: 20041116
  Receipt Date: 20041103
  Transmission Date: 20050328
  Serious: Yes (Hospitalization)
  Sender: FDA-Public Use
  Company Number: 2002073360

PATIENT
  Age: 17 Year
  Sex: Female

DRUGS (5)
  1. GEODON [Suspect]
     Indication: ILL-DEFINED DISORDER
     Dosage: 180 MG (3 IN 1 D), ORAL
     Route: 048
  2. SERTRALINE HYDROCHLORIDE [Concomitant]
  3. OLANZAPINE [Concomitant]
  4. QUETIAPINE (QUETIAPINE) [Concomitant]
  5. VALPROATE SODIUM [Concomitant]

REACTIONS (5)
  - BLOOD PROLACTIN INCREASED [None]
  - DEPRESSED MOOD [None]
  - GALACTORRHOEA [None]
  - PARANOIA [None]
  - SUICIDAL IDEATION [None]
